FAERS Safety Report 9777706 (Version 1)
Quarter: 2013Q4

REPORT INFORMATION
  Report Type: Spontaneous
  Country: FR (occurrence: FR)
  Receive Date: 20131223
  Receipt Date: 20131223
  Transmission Date: 20140711
  Serious: Yes (Hospitalization, Other)
  Sender: FDA-Public Use
  Company Number: FR-ASTRAZENECA-2013SE92604

PATIENT
  Age: 75 Year
  Sex: Male

DRUGS (15)
  1. INEXIUM [Suspect]
     Route: 048
     Dates: start: 20130808, end: 20131110
  2. INEXIUM [Suspect]
     Route: 048
     Dates: start: 20131122
  3. VANCOMYCINE [Suspect]
     Indication: ENDOCARDITIS
     Route: 065
     Dates: start: 20131002, end: 20131107
  4. LYRICA [Suspect]
     Route: 048
     Dates: start: 20131018, end: 20131018
  5. LYRICA [Suspect]
     Route: 048
     Dates: start: 20131030, end: 20131110
  6. XATRAL [Suspect]
     Route: 048
     Dates: end: 20131110
  7. RIFAMPICINE [Suspect]
     Indication: ENDOCARDITIS
     Route: 065
     Dates: start: 20131002, end: 20131107
  8. CELECTOL [Concomitant]
  9. FLECAINE [Concomitant]
  10. TAHOR [Concomitant]
  11. KARDEGIC [Concomitant]
  12. DIFFU K [Concomitant]
     Dosage: 1 DF AT MORNING, 1 DF AT MIDDAY, 2 DF AT NIGHT
  13. COVERSYL [Concomitant]
  14. SEROPLEX [Concomitant]
  15. FORLAX [Concomitant]
     Dosage: 4000

REACTIONS (4)
  - Endocarditis staphylococcal [Unknown]
  - Bone marrow failure [Unknown]
  - Agranulocytosis [Recovered/Resolved]
  - Leukopenia [Unknown]
